FAERS Safety Report 24747195 (Version 1)
Quarter: 2024Q4

REPORT INFORMATION
  Report Type: Spontaneous
  Country: MM (occurrence: MM)
  Receive Date: 20241218
  Receipt Date: 20241218
  Transmission Date: 20250115
  Serious: Yes (Death)
  Sender: ROCHE
  Company Number: MM-ROCHE-10000161068

PATIENT
  Age: 70 Year
  Sex: Male

DRUGS (1)
  1. AVASTIN [Suspect]
     Active Substance: BEVACIZUMAB
     Indication: Hepatocellular carcinoma
     Route: 042
     Dates: start: 20241106

REACTIONS (1)
  - Death [Fatal]
